FAERS Safety Report 8610062-3 (Version None)
Quarter: 2012Q3

REPORT INFORMATION
  Report Type: 
  Country: None (occurrence: None)
  Receive Date: 20120822
  Receipt Date: 20120720
  Transmission Date: 20120928
  Serious: Yes (Death, Hospitalization, Disabling, Other)
  Sender: FDA-Public Use
  Company Number: US-009507513-1111USA02616

PATIENT

DRUGS (4)
  1. FOSAMAX [Suspect]
  2. FOSAMAX [Suspect]
     Route: 048
  3. FOSAMAX [Suspect]
     Indication: OSTEOPOROSIS
     Dosage: 10 MG, UNK
     Route: 048
     Dates: start: 20000825
  4. FOSAMAX [Suspect]
     Dosage: 70 MG, QW
     Route: 048
     Dates: start: 20021115

REACTIONS (51)
  - CAROTID ARTERY OCCLUSION [None]
  - TRANSIENT ISCHAEMIC ATTACK [None]
  - LEUKOCYTOSIS [None]
  - FEMUR FRACTURE [None]
  - DEPRESSION [None]
  - FRACTURE [None]
  - VAGINAL HAEMORRHAGE [None]
  - PERIPHERAL VASCULAR DISORDER [None]
  - COUGH [None]
  - DEMENTIA [None]
  - BACK PAIN [None]
  - HYPONATRAEMIA [None]
  - SKIN ULCER [None]
  - GASTROINTESTINAL ULCER HAEMORRHAGE [None]
  - ANAEMIA [None]
  - FAILURE TO THRIVE [None]
  - HYPOKALAEMIA [None]
  - ASTHENIA [None]
  - SPINAL COMPRESSION FRACTURE [None]
  - RASH [None]
  - RIB FRACTURE [None]
  - PNEUMONIA BACTERIAL [None]
  - CHRONIC OBSTRUCTIVE PULMONARY DISEASE [None]
  - ANXIETY [None]
  - CARPAL TUNNEL SYNDROME [None]
  - FALL [None]
  - CAROTID ARTERY STENOSIS [None]
  - CARDIAC FAILURE CONGESTIVE [None]
  - VAGINITIS BACTERIAL [None]
  - FEELING JITTERY [None]
  - ARTERIOSCLEROSIS CORONARY ARTERY [None]
  - NEUROPATHY PERIPHERAL [None]
  - OBSTRUCTIVE AIRWAYS DISORDER [None]
  - VISUAL IMPAIRMENT [None]
  - INTRACRANIAL ANEURYSM [None]
  - BRONCHITIS [None]
  - DIARRHOEA [None]
  - CONTUSION [None]
  - DUODENAL ULCER HAEMORRHAGE [None]
  - URINARY TRACT INFECTION [None]
  - COLONIC POLYP [None]
  - DIVERTICULUM INTESTINAL [None]
  - NERVOUSNESS [None]
  - ANEURYSM [None]
  - RADIUS FRACTURE [None]
  - CERUMEN IMPACTION [None]
  - BRONCHITIS BACTERIAL [None]
  - INSOMNIA [None]
  - IMPAIRED HEALING [None]
  - ADVERSE DRUG REACTION [None]
  - ARTHRITIS [None]
